FAERS Safety Report 10944927 (Version 1)
Quarter: 2015Q1

REPORT INFORMATION
  Report Type: Spontaneous
  Country: IT (occurrence: IT)
  Receive Date: 20150323
  Receipt Date: 20150323
  Transmission Date: 20150721
  Serious: Yes (Other)
  Sender: FDA-Public Use
  Company Number: IT-ROCHE-1553871

PATIENT
  Age: 54 Year
  Sex: Female

DRUGS (2)
  1. VEMURAFENIB [Suspect]
     Active Substance: VEMURAFENIB
     Indication: LANGERHANS^ CELL HISTIOCYTOSIS
     Route: 065
     Dates: start: 201311
  2. VEMURAFENIB [Suspect]
     Active Substance: VEMURAFENIB
     Route: 065

REACTIONS (2)
  - Papilloma viral infection [Unknown]
  - Hyperkeratosis [Recovered/Resolved]
